FAERS Safety Report 21964334 (Version 1)
Quarter: 2023Q1

REPORT INFORMATION
  Report Type: Spontaneous
  Country: US (occurrence: US)
  Receive Date: 20230207
  Receipt Date: 20230207
  Transmission Date: 20230418
  Serious: Yes (Death, Hospitalization)
  Sender: FDA-Public Use
  Company Number: US-CTI BIOPHARMA-2023US03305

PATIENT

DRUGS (2)
  1. VONJO [Suspect]
     Active Substance: PACRITINIB
     Indication: Myelofibrosis
     Dosage: 200 MG, BID
     Route: 048
     Dates: start: 20220721
  2. VONJO [Suspect]
     Active Substance: PACRITINIB
     Dosage: 100 MG, BID
     Route: 048
     Dates: start: 202208

REACTIONS (1)
  - Death [Fatal]

NARRATIVE: CASE EVENT DATE: 20221207
